FAERS Safety Report 18664255 (Version 2)
Quarter: 2021Q1

REPORT INFORMATION
  Report Type: Report from Study
  Country: DE (occurrence: DE)
  Receive Date: 20201225
  Receipt Date: 20210105
  Transmission Date: 20210419
  Serious: Yes (Hospitalization)
  Sender: FDA-Public Use
  Company Number: DE-ROCHE-2140984

PATIENT
  Age: 68 Year
  Sex: Female

DRUGS (17)
  1. METOPROLOL. [Concomitant]
     Active Substance: METOPROLOL
     Indication: HYPERTENSION
     Dosage: 50 MG, BID
     Dates: start: 2002
  2. ENTRECTINIB [Suspect]
     Active Substance: ENTRECTINIB
     Dosage: 200 MG, QD
     Route: 048
     Dates: start: 20180115, end: 20180131
  3. DULCOLAX (BISACODYL) [Concomitant]
     Active Substance: BISACODYL
     Indication: CONSTIPATION
     Dosage: 20 DROPS, PRN
     Dates: start: 20171105
  4. CANDESARTAN. [Concomitant]
     Active Substance: CANDESARTAN
     Indication: HYPERTENSION
     Dosage: TAKE 1 OR 2 (16MG/12.5MG), QD
     Dates: start: 20180124
  5. OXYCODON [Concomitant]
     Active Substance: OXYCODONE
     Indication: PAIN IN EXTREMITY
     Dosage: 20 MG, BID
     Dates: start: 20180211
  6. NOVAMINSULFON [Concomitant]
     Active Substance: METAMIZOLE
     Indication: PAIN IN EXTREMITY
     Dosage: 40 GTT, QID
     Dates: start: 20180219
  7. TRAMAL [Concomitant]
     Active Substance: TRAMADOL
     Indication: BACK PAIN
     Dosage: 100 MG, BID
     Dates: start: 201703
  8. LAXOBERAL [Concomitant]
     Active Substance: SODIUM PICOSULFATE
     Indication: CONSTIPATION
     Dosage: 20 DROPS, PRN
     Dates: start: 20171123
  9. OXYCODONE HYDROCHLORIDE;PARACETAMOL [Concomitant]
     Active Substance: ACETAMINOPHEN\OXYCODONE HYDROCHLORIDE
     Indication: PAIN IN EXTREMITY
     Dosage: 10 MG, PRN
     Dates: start: 20180219
  10. ENTRECTINIB [Suspect]
     Active Substance: ENTRECTINIB
     Indication: NEOPLASM MALIGNANT
     Dosage: 600 MG, QD
     Route: 048
     Dates: start: 20171103, end: 20171207
  11. ENTRECTINIB [Suspect]
     Active Substance: ENTRECTINIB
     Dosage: 400 MG, QD
     Route: 048
     Dates: start: 20180201, end: 20180219
  12. TOREM [Concomitant]
     Active Substance: TORSEMIDE
     Indication: OEDEMA PERIPHERAL
     Dosage: 5 MG, PRN
     Dates: start: 20171202
  13. ENTRECTINIB [Suspect]
     Active Substance: ENTRECTINIB
     Dosage: 400 MG, QD
     Route: 048
     Dates: start: 20171208, end: 20180114
  14. XGEVA [Concomitant]
     Active Substance: DENOSUMAB
     Indication: METASTASES TO BONE
     Dosage: UNK, Q4WK
     Dates: start: 20180126
  15. ENTRECTINIB [Suspect]
     Active Substance: ENTRECTINIB
     Dosage: 200 MG, QD
     Route: 048
     Dates: start: 20180223
  16. MACROGOL [Concomitant]
     Active Substance: POLYETHYLENE GLYCOLS
     Indication: CONSTIPATION
     Dosage: 1 BAG, PRN
     Dates: start: 20171109
  17. MICROLAX [Concomitant]
     Indication: CONSTIPATION
     Dosage: UNK, PRN
     Dates: start: 20171111

REACTIONS (1)
  - Diplopia [Recovered/Resolved]

NARRATIVE: CASE EVENT DATE: 20180219
